FAERS Safety Report 13338727 (Version 1)
Quarter: 2017Q1

REPORT INFORMATION
  Report Type: Spontaneous
  Country: US (occurrence: US)
  Receive Date: 20170315
  Receipt Date: 20170315
  Transmission Date: 20170428
  Serious: No
  Sender: FDA-Public Use
  Company Number: US-DEPOMED, INC.-US-2016DEP012601

PATIENT

DRUGS (8)
  1. CLONOPIN [Concomitant]
     Active Substance: CLONAZEPAM
     Indication: PRODUCT USED FOR UNKNOWN INDICATION
     Dosage: 0.5 MG, QHS
     Route: 048
     Dates: start: 20160613
  2. CYMBALTA [Concomitant]
     Active Substance: DULOXETINE HYDROCHLORIDE
     Indication: PAIN
     Dosage: 60 MG, QD
     Route: 048
     Dates: start: 201602
  3. PREDNISONE. [Concomitant]
     Active Substance: PREDNISONE
     Dosage: 10 MG, UNK
     Dates: start: 2016
  4. CYMBALTA [Concomitant]
     Active Substance: DULOXETINE HYDROCHLORIDE
     Indication: AFFECTIVE DISORDER
  5. MODAFINIL. [Concomitant]
     Active Substance: MODAFINIL
     Indication: FATIGUE
     Dosage: 200 MG, BID
     Route: 048
     Dates: start: 201603
  6. GRALISE [Suspect]
     Active Substance: GABAPENTIN
     Indication: MULTIPLE SCLEROSIS
     Dosage: 1800 MG, QD
     Route: 048
     Dates: start: 20160926
  7. CARBAMAZEPINE. [Concomitant]
     Active Substance: CARBAMAZEPINE
     Indication: TREMOR
     Dosage: 200 MG, TID
     Route: 048
     Dates: start: 20160628
  8. PREDNISONE. [Concomitant]
     Active Substance: PREDNISONE
     Indication: PRODUCT USED FOR UNKNOWN INDICATION
     Dosage: 60 MG, UNK
     Dates: start: 20160809, end: 2016

REACTIONS (3)
  - Product use issue [Not Recovered/Not Resolved]
  - Peripheral swelling [Unknown]
  - Erythema [Unknown]

NARRATIVE: CASE EVENT DATE: 20160926
